FAERS Safety Report 7907490-8 (Version None)
Quarter: 2011Q4

REPORT INFORMATION
  Report Type: 
  Country: None (occurrence: None)
  Receive Date: 20111110
  Receipt Date: 20111027
  Transmission Date: 20120403
  Serious: Yes (Disabling)
  Sender: FDA-Public Use
  Company Number: CA-SANOFI-AVENTIS-2011SA071041

PATIENT
  Age: 56 Year
  Sex: Male

DRUGS (4)
  1. SOLOSTAR [Suspect]
     Dates: start: 20111003
  2. SOLOSTAR [Suspect]
     Dates: start: 20111003
  3. APIDRA [Suspect]
     Dates: start: 20111003
  4. LANTUS [Suspect]
     Dates: start: 20111003

REACTIONS (2)
  - HYPOGLYCAEMIC UNCONSCIOUSNESS [None]
  - WRONG DRUG ADMINISTERED [None]
